FAERS Safety Report 5612719-5 (Version None)
Quarter: 2008Q1

REPORT INFORMATION
  Report Type: 
  Country: None (occurrence: None)
  Receive Date: 20080204
  Receipt Date: 20080123
  Transmission Date: 20080703
  Serious: Yes (Hospitalization)
  Sender: FDA-Public Use
  Company Number: ES-ELI_LILLY_AND_COMPANY-ES200801005698

PATIENT
  Age: 70 Year
  Sex: Female

DRUGS (4)
  1. FORTEO [Suspect]
     Indication: OSTEOPOROSIS
     Dosage: 20 UG, DAILY (1/D)
     Route: 058
     Dates: start: 20071101
  2. EUTIROX [Concomitant]
     Indication: THYROID DISORDER
     Dosage: 25 MG, DAILY (1/D)
  3. IDEOS [Concomitant]
     Dosage: 1 D/F, DAILY (1/D)
  4. AMERIDE [Concomitant]
     Indication: DIURETIC THERAPY

REACTIONS (3)
  - FALL [None]
  - LOSS OF CONSCIOUSNESS [None]
  - UPPER LIMB FRACTURE [None]
